FAERS Safety Report 15770070 (Version 1)
Quarter: 2018Q4

REPORT INFORMATION
  Report Type: Spontaneous
  Country: CA (occurrence: CA)
  Receive Date: 20181228
  Receipt Date: 20181228
  Transmission Date: 20190205
  Serious: Yes (Hospitalization, Other)
  Sender: FDA-Public Use
  Company Number: CA-ORION CORPORATION ORION PHARMA-TREX2016-0990

PATIENT
  Age: 55 Year
  Sex: Male

DRUGS (6)
  1. CICLOSPORIN [Suspect]
     Active Substance: CYCLOSPORINE
     Indication: PSORIASIS
     Route: 065
  2. INSULIN [Concomitant]
     Active Substance: INSULIN NOS
     Route: 065
  3. PREDNISONE. [Concomitant]
     Active Substance: PREDNISONE
     Route: 065
  4. ENBREL [Suspect]
     Active Substance: ETANERCEPT
     Indication: PRODUCT USED FOR UNKNOWN INDICATION
     Route: 065
  5. METHOTREXATE (TRADE NAME UNKNOWN) [Suspect]
     Active Substance: METHOTREXATE
     Indication: PRODUCT USED FOR UNKNOWN INDICATION
     Route: 065
  6. ACITRETIN. [Suspect]
     Active Substance: ACITRETIN
     Indication: PRODUCT USED FOR UNKNOWN INDICATION
     Route: 065

REACTIONS (13)
  - Diabetes mellitus [Recovering/Resolving]
  - Drug ineffective [Recovering/Resolving]
  - Blood creatinine increased [Recovering/Resolving]
  - Crying [Recovering/Resolving]
  - Drug intolerance [Recovering/Resolving]
  - Pain [Unknown]
  - Renal disorder [Recovering/Resolving]
  - Diarrhoea [Unknown]
  - Pruritus [Unknown]
  - Hypertension [Recovering/Resolving]
  - Psoriasis [Recovering/Resolving]
  - Drug resistance [Recovering/Resolving]
  - Gastroenteritis salmonella [Unknown]
